FAERS Safety Report 15052835 (Version 4)
Quarter: 2018Q3

REPORT INFORMATION
  Report Type: Report from Study
  Country: US (occurrence: US)
  Receive Date: 20180622
  Receipt Date: 20180810
  Transmission Date: 20181010
  Serious: Yes (Hospitalization, Other)
  Sender: FDA-Public Use
  Company Number: PHEH2018US025082

PATIENT
  Age: 61 Year
  Sex: Female

DRUGS (3)
  1. FOLIC ACID. [Suspect]
     Active Substance: FOLIC ACID
     Indication: PSORIASIS
     Dosage: UNK UNK, QD
     Route: 048
     Dates: start: 20150722
  2. COSENTYX [Suspect]
     Active Substance: SECUKINUMAB
     Indication: PSORIASIS
     Dosage: 300 MG, QMO
     Route: 058
  3. METHOTREXATE. [Suspect]
     Active Substance: METHOTREXATE
     Indication: PSORIASIS
     Dosage: UNK UNK, QW
     Route: 048
     Dates: start: 20160525

REACTIONS (12)
  - Muscular weakness [Unknown]
  - Balance disorder [Unknown]
  - Stress [Unknown]
  - Transient ischaemic attack [Unknown]
  - Facial paralysis [Unknown]
  - Aphasia [Unknown]
  - Fall [Unknown]
  - Coordination abnormal [Unknown]
  - Gait disturbance [Unknown]
  - Cerebrovascular accident [Recovered/Resolved]
  - Memory impairment [Unknown]
  - Motor dysfunction [Unknown]

NARRATIVE: CASE EVENT DATE: 201710
